FAERS Safety Report 21667572 (Version 1)
Quarter: 2022Q4

REPORT INFORMATION
  Report Type: Spontaneous
  Country: US (occurrence: US)
  Receive Date: 20221201
  Receipt Date: 20221201
  Transmission Date: 20230112
  Serious: Yes (Hospitalization, Other)
  Sender: FDA-Public Use
  Company Number: US-SA-SAC20221201000052

PATIENT
  Sex: Female
  Weight: 60.32 kg

DRUGS (12)
  1. DUPIXENT [Suspect]
     Active Substance: DUPILUMAB
     Indication: Asthma
     Dosage: 300 MG, QOW
  2. SYNTHROID [Concomitant]
     Active Substance: LEVOTHYROXINE SODIUM
  3. NADOLOL [Concomitant]
     Active Substance: NADOLOL
  4. VITAMINS NOS [Concomitant]
     Active Substance: VITAMINS
  5. CROMOLYN SODIUM [Concomitant]
     Active Substance: CROMOLYN SODIUM
     Route: 048
  6. UBRELVY [Concomitant]
     Active Substance: UBROGEPANT
  7. PREDNISONE [Concomitant]
     Active Substance: PREDNISONE
  8. XOPENEX [Concomitant]
     Active Substance: LEVALBUTEROL HYDROCHLORIDE
     Dosage: 1.25MG/3ML
  9. SYMBICORT [Concomitant]
     Active Substance: BUDESONIDE\FORMOTEROL FUMARATE DIHYDRATE
     Dosage: 160-4.5MCG
  10. CLONAZEPAM [Concomitant]
     Active Substance: CLONAZEPAM
  11. LOVASTATIN [Concomitant]
     Active Substance: LOVASTATIN
  12. SODIUM CHLORIDE [Concomitant]
     Active Substance: SODIUM CHLORIDE
     Dosage: 1G

REACTIONS (3)
  - Blood glucose decreased [Unknown]
  - Respiratory distress [Unknown]
  - Asthma [Unknown]
